FAERS Safety Report 23635079 (Version 1)
Quarter: 2024Q1

REPORT INFORMATION
  Report Type: Spontaneous
  Country: US (occurrence: US)
  Receive Date: 20240315
  Receipt Date: 20240315
  Transmission Date: 20240410
  Serious: No
  Sender: FDA-Public Use
  Company Number: US-PADAGIS-2024PAD00346

PATIENT

DRUGS (2)
  1. NYSTATIN [Suspect]
     Active Substance: NYSTATIN
     Indication: Product used for unknown indication
     Dosage: UNK
     Route: 065
  2. ESTRADIOL VAGINAL [Suspect]
     Active Substance: ESTRADIOL
     Indication: Fungal infection
     Dosage: 1 G
     Route: 065

REACTIONS (4)
  - Inflammation [Unknown]
  - Adverse drug reaction [Unknown]
  - Product use issue [Unknown]
  - Product use in unapproved indication [Unknown]
